FAERS Safety Report 10196790 (Version 1)
Quarter: 2014Q2

REPORT INFORMATION
  Report Type: Spontaneous
  Country: GB (occurrence: None)
  Receive Date: 20140522
  Receipt Date: 20140522
  Transmission Date: 20141212
  Serious: Yes (Hospitalization)
  Sender: FDA-Public Use
  Company Number: FK201401854

PATIENT
  Age: 20 Year
  Sex: Male
  Weight: 76 kg

DRUGS (10)
  1. METHOTREXATE (MANUFACTURER UNKNOWN) (METHOTREXATE) (METHOTREXATE) [Suspect]
     Indication: OSTEOSARCOMA
     Dosage: (NOT OTHERWISE SPECIFIED)
     Route: 042
     Dates: start: 20131202
  2. MIFAMURTIDE SODIUM [Suspect]
     Indication: OSTEOSARCOMA
     Dosage: 2 IN 1 WK?(NOT OTHERWISE SPECIFIED)
     Route: 042
     Dates: start: 20140327
  3. DEXAMETHASONE (DEXAMETHASONE) [Concomitant]
  4. DOXORUBICIN (DOXORUBIIN) [Concomitant]
  5. METOCLOPRAMIDE (METOCLOPRAMIDE) [Concomitant]
  6. ONDANSETRON (ONDANSETRON) [Concomitant]
  7. SODIUM BICARBONATE (SODIUM BICARBONATE) [Concomitant]
  8. APREPITANT (APREPITANT) [Concomitant]
  9. CALCIUM LEVOFOLINATE (CALCIUM LEVOFOLINATE) (CALCIUM LEVOFOLINATE) [Concomitant]
  10. CISPLATIN (CISPLATIN) [Concomitant]

REACTIONS (3)
  - Chemotherapeutic drug level increased [None]
  - Blood creatine increased [None]
  - Potentiating drug interaction [None]
